FAERS Safety Report 10308537 (Version 9)
Quarter: 2014Q3

REPORT INFORMATION
  Report Type: Report from Study
  Country: US (occurrence: US)
  Receive Date: 20140716
  Receipt Date: 20140915
  Transmission Date: 20150326
  Serious: Yes (Hospitalization, Other)
  Sender: FDA-Public Use
  Company Number: US-SA-2013SA121945

PATIENT
  Age: 42 Year
  Sex: Female

DRUGS (3)
  1. IMMUNOGLOBULINS [Concomitant]
     Active Substance: HUMAN IMMUNOGLOBULIN G
     Dates: start: 20140512
  2. COPAXONE [Concomitant]
     Active Substance: GLATIRAMER ACETATE
     Dates: start: 200906, end: 201311
  3. AUBAGIO [Suspect]
     Active Substance: TERIFLUNOMIDE
     Indication: MULTIPLE SCLEROSIS
     Route: 048
     Dates: start: 20131119

REACTIONS (55)
  - Visual field defect [Not Recovered/Not Resolved]
  - Musculoskeletal pain [Unknown]
  - Depressed mood [Not Recovered/Not Resolved]
  - Fatigue [Not Recovered/Not Resolved]
  - Pruritus [Not Recovered/Not Resolved]
  - Feeling abnormal [Not Recovered/Not Resolved]
  - Hypersensitivity [Not Recovered/Not Resolved]
  - Chills [Not Recovered/Not Resolved]
  - Crying [Not Recovered/Not Resolved]
  - Hypoaesthesia [Recovering/Resolving]
  - Pruritus [Unknown]
  - Multiple sclerosis relapse [Unknown]
  - Condition aggravated [Not Recovered/Not Resolved]
  - Somnolence [Not Recovered/Not Resolved]
  - Fatigue [Unknown]
  - Balance disorder [Not Recovered/Not Resolved]
  - Dysgraphia [Unknown]
  - Band sensation [Unknown]
  - Blood iron decreased [Unknown]
  - Unevaluable event [Unknown]
  - Primary progressive multiple sclerosis [Unknown]
  - Increased tendency to bruise [Not Recovered/Not Resolved]
  - Muscle spasms [Unknown]
  - Breast mass [Unknown]
  - Faecal incontinence [Unknown]
  - Weight increased [Unknown]
  - Muscle spasms [Not Recovered/Not Resolved]
  - Asthenia [Not Recovered/Not Resolved]
  - Musculoskeletal stiffness [Not Recovered/Not Resolved]
  - Urinary tract infection [Unknown]
  - Vision blurred [Unknown]
  - Alopecia [Unknown]
  - Abnormal dreams [Not Recovered/Not Resolved]
  - Slow speech [Not Recovered/Not Resolved]
  - Electric shock [Not Recovered/Not Resolved]
  - Visual acuity reduced [Unknown]
  - Weight decreased [Recovered/Resolved]
  - Rash [Recovered/Resolved]
  - Rash [Unknown]
  - Optic neuritis [Not Recovered/Not Resolved]
  - Impaired driving ability [Not Recovered/Not Resolved]
  - Peroneal nerve palsy [Not Recovered/Not Resolved]
  - Skin exfoliation [Recovered/Resolved]
  - Visual acuity reduced [Not Recovered/Not Resolved]
  - Pain [Not Recovered/Not Resolved]
  - Tremor [Unknown]
  - White blood cell count decreased [Not Recovered/Not Resolved]
  - Gait disturbance [Unknown]
  - Sciatica [Unknown]
  - Neuralgia [Unknown]
  - Nausea [Not Recovered/Not Resolved]
  - Headache [Not Recovered/Not Resolved]
  - Diarrhoea [Not Recovered/Not Resolved]
  - Pain [Unknown]
  - Dizziness [Unknown]

NARRATIVE: CASE EVENT DATE: 201311
